FAERS Safety Report 8875775 (Version 1)
Quarter: 2012Q4

REPORT INFORMATION
  Report Type: 
  Country: MX (occurrence: MX)
  Receive Date: 20121030
  Receipt Date: 20121030
  Transmission Date: 20130627
  Serious: Yes (Death)
  Sender: FDA-Public Use
  Company Number: PHHY2012MX097799

PATIENT
  Age: 81 Year
  Sex: Male

DRUGS (1)
  1. EXELON PATCH [Suspect]
     Indication: DEMENTIA ALZHEIMER^S TYPE
     Dosage: 4.6 mg, daily (1 patch (4.6 mg/5 cm2) per day)
     Route: 062
     Dates: start: 20120629

REACTIONS (1)
  - Infarction [Fatal]
